FAERS Safety Report 9233160 (Version 1)
Quarter: 2013Q2

REPORT INFORMATION
  Report Type: Spontaneous
  Country: US (occurrence: None)
  Receive Date: 20130415
  Receipt Date: 20130415
  Transmission Date: 20140414
  Serious: Yes (Hospitalization)
  Sender: FDA-Public Use
  Company Number: None

PATIENT
  Age: 32 Year
  Sex: Female
  Weight: 45.2 kg

DRUGS (2)
  1. PEGINTERFERON [Suspect]
     Indication: HEPATITIS C
     Dates: start: 201208, end: 201301
  2. RIBAVIRIN [Concomitant]

REACTIONS (8)
  - Fatigue [None]
  - Rash [None]
  - Mood swings [None]
  - Pruritus generalised [None]
  - Acute psychosis [None]
  - Mania [None]
  - Treatment noncompliance [None]
  - Refusal of treatment by patient [None]
